FAERS Safety Report 7312584-4 (Version None)
Quarter: 2011Q1

REPORT INFORMATION
  Report Type: 
  Country: None (occurrence: None)
  Receive Date: 20110224
  Receipt Date: 20110223
  Transmission Date: 20110831
  Serious: Yes (Hospitalization)
  Sender: FDA-Public Use
  Company Number: JP-ABBOTT-10P-087-0691191-00

PATIENT
  Age: 56 Year
  Sex: Male

DRUGS (8)
  1. KALETRA [Suspect]
     Indication: HIV INFECTION
     Dosage: 4 TABLETS DAILY
     Route: 048
     Dates: start: 20090819
  2. FILGRASTIM GENETICAL RECOMBINATION [Concomitant]
     Route: 058
     Dates: start: 20091221, end: 20091221
  3. ATOVAQUONE [Concomitant]
     Indication: ANTIFUNGAL PROPHYLAXIS
     Route: 048
     Dates: start: 20090702, end: 20090916
  4. LANSAP [Concomitant]
     Indication: PRODUCT USED FOR UNKNOWN INDICATION
  5. FILGRASTIM GENETICAL RECOMBINATION [Concomitant]
     Indication: NEUTROPENIA
     Route: 058
     Dates: start: 20090713, end: 20090713
  6. PENTAMIDINE ISETHIONATE [Concomitant]
     Indication: ANTIFUNGAL PROPHYLAXIS
     Route: 055
     Dates: start: 20090702
  7. TRUVADA [Suspect]
     Indication: HIV INFECTION
     Dosage: 1 TABLET DAILY
     Route: 048
     Dates: start: 20090819
  8. AZITHROMYCIN [Suspect]
     Indication: OPPORTUNISTIC INFECTION PROPHYLAXIS
     Dates: start: 20090714, end: 20090916

REACTIONS (4)
  - THROMBOCYTOPENIA [None]
  - DRUG ERUPTION [None]
  - PURPURA [None]
  - IMMUNE RECONSTITUTION SYNDROME [None]
